FAERS Safety Report 5224202-X (Version None)
Quarter: 2007Q1

REPORT INFORMATION
  Report Type: 
  Country: None (occurrence: None)
  Receive Date: 20070130
  Receipt Date: 20070116
  Transmission Date: 20070707
  Serious: Yes (Other)
  Sender: FDA-Public Use
  Company Number: GB-ELI_LILLY_AND_COMPANY-GB200611001260

PATIENT
  Age: 66 Year
  Sex: Female
  Weight: 46.5 kg

DRUGS (4)
  1. FORTEO [Suspect]
     Indication: OSTEOPOROSIS
     Dosage: 20 UG, UNK
     Route: 058
     Dates: start: 20050920
  2. SALMETEROL [Concomitant]
     Indication: ASTHMA
     Route: 055
  3. VENTOLIN                                /SCH/ [Concomitant]
     Indication: ASTHMA
     Route: 055
  4. NITRAZEPAM [Concomitant]
     Indication: POOR QUALITY SLEEP
     Route: 048

REACTIONS (1)
  - BLOOD CHOLESTEROL INCREASED [None]
